FAERS Safety Report 7815158-1 (Version None)
Quarter: 2011Q4

REPORT INFORMATION
  Report Type: 
  Country: None (occurrence: None)
  Receive Date: 20111014
  Receipt Date: 20111006
  Transmission Date: 20120403
  Serious: Yes (Hospitalization)
  Sender: FDA-Public Use
  Company Number: US-PERRIGO-11US008488

PATIENT
  Sex: Male
  Weight: 136.5 kg

DRUGS (1)
  1. DIPHENHYDRAMINE HYDROCHLORIDE [Suspect]
     Indication: PRODUCT USED FOR UNKNOWN INDICATION
     Dosage: UNK UNK, SINGLE
     Route: 048
     Dates: start: 20111006, end: 20111006

REACTIONS (8)
  - INTENTIONAL OVERDOSE [None]
  - LOSS OF CONSCIOUSNESS [None]
  - DYSSTASIA [None]
  - SOMNOLENCE [None]
  - FALL [None]
  - COMA [None]
  - DYSARTHRIA [None]
  - HALLUCINATION, VISUAL [None]
